FAERS Safety Report 13109441 (Version 1)
Quarter: 2017Q1

REPORT INFORMATION
  Report Type: Spontaneous
  Country: CN (occurrence: CN)
  Receive Date: 20170112
  Receipt Date: 20170112
  Transmission Date: 20170428
  Serious: Yes (Hospitalization)
  Sender: FDA-Public Use
  Company Number: CN-PFIZER INC-2017011083

PATIENT
  Age: 63 Year
  Sex: Male
  Weight: 80 kg

DRUGS (12)
  1. PIPERACILLIN/TAZOBACTAM [Suspect]
     Active Substance: PIPERACILLIN SODIUM\TAZOBACTAM SODIUM
     Dosage: UNK
  2. GLUCOSE [Concomitant]
     Active Substance: DEXTROSE
     Indication: VEHICLE SOLUTION USE
     Dosage: 250 ML, UNK
  3. MAGNESIUM ISOGLYCYRRHIZINATE [Suspect]
     Active Substance: MAGNESIUM ISOGLYCYRRHIZINATE
     Dosage: UNK
     Dates: start: 20161112, end: 20161118
  4. MEROPENEM. [Suspect]
     Active Substance: MEROPENEM
     Indication: INFECTION
     Dosage: 2 DF, 3X/DAY
     Route: 041
     Dates: start: 20161110, end: 20161118
  5. REDUCED GLUTATHIONE SODIUM [Suspect]
     Active Substance: GLUTATHIONE
     Indication: LIVER DISORDER
     Dosage: 1.2 G, 1X/DAY
     Route: 041
     Dates: start: 20161106, end: 20161118
  6. DIANTAI [Suspect]
     Active Substance: VALPROATE SODIUM
     Indication: EPILEPSY
     Dosage: 0.4 G, 2X/DAY
     Route: 045
     Dates: start: 20161109, end: 20161114
  7. AMIKACIN SULFATE. [Suspect]
     Active Substance: AMIKACIN SULFATE
     Indication: INFECTION
     Dosage: 2 DF, 1X/DAY
     Route: 041
     Dates: start: 20161107, end: 20161116
  8. SODIUM CHLORIDE. [Concomitant]
     Active Substance: SODIUM CHLORIDE
     Indication: VEHICLE SOLUTION USE
     Dosage: 100 ML, UNK
  9. SODIUM VALPROATE [Suspect]
     Active Substance: VALPROATE SODIUM
     Indication: EPILEPSY
     Dosage: 0.4 G, 2X/DAY
     Route: 041
     Dates: start: 20161031, end: 20161109
  10. SULPERAZON [Suspect]
     Active Substance: CEFOPERAZONE SODIUM\SULBACTAM SODIUM
     Indication: INFECTION
     Dosage: 2 DF, 3X/DAY
     Route: 041
     Dates: start: 20161107, end: 20161110
  11. LEVOFLOXACIN LACTATE [Suspect]
     Active Substance: LEVOFLOXACIN LACTATE
     Indication: INFECTION
     Dosage: 100 ML, 1X/DAY
     Route: 041
     Dates: start: 20161030, end: 20161107
  12. SODIUM CHLORIDE. [Suspect]
     Active Substance: SODIUM CHLORIDE

REACTIONS (1)
  - Liver injury [Recovering/Resolving]

NARRATIVE: CASE EVENT DATE: 20161111
